FAERS Safety Report 5008684-4 (Version None)
Quarter: 2006Q2

REPORT INFORMATION
  Report Type: 
  Country: None (occurrence: None)
  Receive Date: 20060523
  Receipt Date: 20060517
  Transmission Date: 20061013
  Serious: Yes (Hospitalization)
  Sender: FDA-Public Use
  Company Number: FR-GLAXOSMITHKLINE-B0424686A

PATIENT
  Age: 86 Year
  Sex: Female

DRUGS (3)
  1. AUGMENTIN '125' [Suspect]
     Indication: CHILLS
     Route: 048
     Dates: start: 20060401, end: 20060403
  2. CELECTOL [Concomitant]
     Indication: HYPERTENSION
     Route: 065
     Dates: start: 19960101
  3. COZAAR [Concomitant]
     Indication: HYPERTENSION
     Route: 065
     Dates: start: 19960101

REACTIONS (5)
  - FALL [None]
  - HYPOTENSION [None]
  - MALAISE [None]
  - RASH [None]
  - RASH MACULO-PAPULAR [None]
